FAERS Safety Report 5676235-7 (Version None)
Quarter: 2008Q1

REPORT INFORMATION
  Report Type: 
  Country: None (occurrence: None)
  Receive Date: 20080321
  Receipt Date: 20080312
  Transmission Date: 20080703
  Serious: Yes (Life-Threatening, Hospitalization, Disabling)
  Sender: FDA-Public Use
  Company Number: US-SANOFI-SYNTHELABO-A03200801089

PATIENT
  Age: 44 Year
  Sex: Male

DRUGS (1)
  1. AMBIEN [Suspect]
     Indication: INSOMNIA
     Dosage: UNK
     Route: 048
     Dates: start: 20060301

REACTIONS (30)
  - AMNESIA [None]
  - ASTHENIA [None]
  - BACK PAIN [None]
  - BLADDER DISORDER [None]
  - COGNITIVE DISORDER [None]
  - DISTURBANCE IN ATTENTION [None]
  - DYSPNOEA [None]
  - GAIT DISTURBANCE [None]
  - HEAD INJURY [None]
  - HYPERHIDROSIS [None]
  - HYPOXIA [None]
  - IMPAIRED DRIVING ABILITY [None]
  - INTESTINAL FUNCTIONAL DISORDER [None]
  - IRRITABILITY [None]
  - LOSS OF CONSCIOUSNESS [None]
  - LUNG DISORDER [None]
  - OSTEOMYELITIS [None]
  - PAIN IN EXTREMITY [None]
  - PERONEAL NERVE PALSY [None]
  - PERSONALITY CHANGE [None]
  - PUPIL FIXED [None]
  - RESPIRATORY ARREST [None]
  - RESUSCITATION [None]
  - ROAD TRAFFIC ACCIDENT [None]
  - SOMNAMBULISM [None]
  - STOMACH DISCOMFORT [None]
  - SUICIDAL IDEATION [None]
  - THINKING ABNORMAL [None]
  - TRAUMATIC BRAIN INJURY [None]
  - WALKING AID USER [None]
